FAERS Safety Report 5562474-2 (Version None)
Quarter: 2007Q4

REPORT INFORMATION
  Report Type: 
  Country: None (occurrence: None)
  Receive Date: 20071215
  Receipt Date: 20070103
  Transmission Date: 20080405
  Serious: No
  Sender: FDA-Public Use
  Company Number: US-AMGEN-US196095

PATIENT
  Sex: Female

DRUGS (6)
  1. ENBREL [Suspect]
     Indication: RHEUMATOID ARTHRITIS
     Route: 058
     Dates: start: 20041101
  2. AZULFIDINE EN-TABS [Concomitant]
     Route: 065
  3. ACTONEL [Concomitant]
     Route: 065
  4. DEPAKOTE [Concomitant]
     Route: 065
  5. TOPROL-XL [Concomitant]
     Route: 065
  6. SEROQUEL [Concomitant]
     Route: 065

REACTIONS (3)
  - ARTHRALGIA [None]
  - FALL [None]
  - OSTEOARTHRITIS [None]
